FAERS Safety Report 7796085-5 (Version None)
Quarter: 2011Q4

REPORT INFORMATION
  Report Type: 
  Country: None (occurrence: None)
  Receive Date: 20111004
  Receipt Date: 20110919
  Transmission Date: 20120403
  Serious: Yes (Life-Threatening, Hospitalization)
  Sender: FDA-Public Use
  Company Number: US-WATSON-2011-15584

PATIENT
  Age: 3 Month
  Sex: Female

DRUGS (2)
  1. VECURONIUM BROMIDE [Suspect]
     Indication: ANAESTHESIA
     Route: 042
  2. SEVOFLURANE [Suspect]
     Indication: ANAESTHESIA
     Route: 042

REACTIONS (1)
  - VENTRICULAR FIBRILLATION [None]
